FAERS Safety Report 8012387-1 (Version None)
Quarter: 2011Q4

REPORT INFORMATION
  Report Type: 
  Country: None (occurrence: None)
  Receive Date: 20111228
  Receipt Date: 20111227
  Transmission Date: 20120403
  Serious: Yes (Other)
  Sender: FDA-Public Use
  Company Number: US-AMGEN-USASP2011068982

PATIENT
  Sex: Female

DRUGS (1)
  1. NPLATE [Suspect]
     Indication: IDIOPATHIC THROMBOCYTOPENIC PURPURA
     Dosage: 375 MUG, UNK

REACTIONS (4)
  - THERAPEUTIC RESPONSE DECREASED [None]
  - PLATELET COUNT ABNORMAL [None]
  - PETECHIAE [None]
  - HAEMATOMA [None]
